FAERS Safety Report 10931953 (Version 1)
Quarter: 2015Q1

REPORT INFORMATION
  Report Type: Spontaneous
  Country: SA (occurrence: SA)
  Receive Date: 20150319
  Receipt Date: 20150319
  Transmission Date: 20150721
  Serious: Yes (Death, Other)
  Sender: FDA-Public Use
  Company Number: SA-MYLANLABS-2015M1008840

PATIENT

DRUGS (8)
  1. METHYLPREDNISOLONE. [Suspect]
     Active Substance: METHYLPREDNISOLONE
     Dosage: 500MG DAILY FOR 4 DAYS (AS PART OF 2ND CYCLE ESHAP)
     Route: 042
  2. DACARBAZINE. [Suspect]
     Active Substance: DACARBAZINE
     Indication: HODGKIN^S DISEASE
     Dosage: 30% DOSE REDUCTION DUE TO LIVER DYSFUNCTION
     Route: 065
  3. CYTARABINE. [Suspect]
     Active Substance: CYTARABINE
     Indication: HODGKIN^S DISEASE
     Dosage: 2G/M2 ON DAY 5
     Route: 042
  4. DOXORUBICIN [Suspect]
     Active Substance: DOXORUBICIN
     Indication: HODGKIN^S DISEASE
     Dosage: 30% DOSE REDUCTION DUE TO LIVER DYSFUNCTION
     Route: 065
  5. VINBLASTINE [Suspect]
     Active Substance: VINBLASTINE
     Indication: HODGKIN^S DISEASE
     Dosage: 30% DOSE REDUCTION DUE TO LIVER DYSFUNCTION
     Route: 065
  6. CISPLATIN. [Suspect]
     Active Substance: CISPLATIN
     Indication: HODGKIN^S DISEASE
     Dosage: 25MG/M2 DAILY FOR 4 DAYS
     Route: 041
  7. BLEOMYCIN [Suspect]
     Active Substance: BLEOMYCIN SULFATE
     Indication: HODGKIN^S DISEASE
     Dosage: 30% DOSE REDUCTION DUE TO LIVER DYSFUNCTION
     Route: 065
  8. METHYLPREDNISOLONE. [Suspect]
     Active Substance: METHYLPREDNISOLONE
     Indication: HODGKIN^S DISEASE
     Dosage: 250MG DAILY FOR 4 DAYS; DOSAGE INCREASED FOR SECOND CYCLE
     Route: 042

REACTIONS (3)
  - Acute kidney injury [Not Recovered/Not Resolved]
  - Vanishing bile duct syndrome [Fatal]
  - Hepatic failure [Fatal]
